FAERS Safety Report 9842969 (Version 1)
Quarter: 2014Q1

REPORT INFORMATION
  Report Type: Spontaneous
  Country: IT (occurrence: IT)
  Receive Date: 20140124
  Receipt Date: 20140124
  Transmission Date: 20141002
  Serious: Yes (Other)
  Sender: FDA-Public Use
  Company Number: IT-PFIZER INC-2014020909

PATIENT
  Age: 88 Year
  Sex: Female

DRUGS (6)
  1. BISOPROLOL FUMARATE [Suspect]
     Dosage: 1 DF, DAILY
     Route: 048
     Dates: start: 20121103
  2. ALDACTONE [Suspect]
     Dosage: 1 DF, DAILY
     Route: 048
     Dates: start: 20130803
  3. ISOSORBIDE MONONITRATE [Suspect]
     Dosage: 80 MG, DAILY
     Route: 048
     Dates: start: 20121103
  4. LASIX [Suspect]
     Dosage: 2 DF, DAILY
     Route: 048
     Dates: start: 20121103
  5. AMIODAR [Concomitant]
     Dosage: 200 MG, UNK
  6. PARIET [Concomitant]

REACTIONS (1)
  - Syncope [Recovering/Resolving]
